FAERS Safety Report 9848208 (Version 1)
Quarter: 2013Q4

REPORT INFORMATION
  Report Type: Spontaneous
  Country: US (occurrence: None)
  Receive Date: 20131226
  Receipt Date: 20131226
  Transmission Date: 20140711
  Serious: Yes (Other)
  Sender: FDA-Public Use
  Company Number: PHEH2013US006446

PATIENT
  Age: 60 Year
  Sex: Male

DRUGS (6)
  1. ARCAPTA (INDACATEROL) UNKNOWN [Suspect]
  2. SIMVASTATIN (SIMVASTATIN) [Concomitant]
  3. NEXIUM 1-2-3 (AMOXICILLIN TRIHYDRATE, CLARITHROMYCIN, ESOMEPRAZOLE MAGNESIUM) [Concomitant]
  4. LOSARTAN (LOSARAN) [Concomitant]
  5. KOMBIGLYZE (METFORMIN HYDROCHLORIDE, SAXAGLIPTIN HYDROCHLORIDE) [Concomitant]
  6. TORADOL (KETOROLAC TROMETHAMINE) [Concomitant]

REACTIONS (1)
  - Nasopharyngitis [None]
